FAERS Safety Report 4450630-6 (Version None)
Quarter: 2004Q3

REPORT INFORMATION
  Report Type: 
  Country: None (occurrence: None)
  Receive Date: 20040914
  Receipt Date: 20040906
  Transmission Date: 20050211
  Serious: Yes (Death)
  Sender: FDA-Public Use
  Company Number: F01200402707

PATIENT
  Age: 62 Year
  Sex: Male

DRUGS (9)
  1. OXALIPLATIN-SOLUTION 85MG/M2 [Suspect]
     Indication: COLORECTAL CANCER METASTATIC
     Dosage: 85 MG/M2 Q2W - INTRAVENOUS NOS
     Route: 042
     Dates: start: 20040622, end: 20040622
  2. FLUOROURACIL [Suspect]
     Dosage: 400 MG/M2 AND 600 MG/M2 ON DAY 1 AND 2, G2W - INTRAVENOUS NOS
     Route: 042
     Dates: start: 20040622, end: 20040623
  3. LEUCOVORIN CALCIUM [Suspect]
     Dosage: 200 MG/M2 DAY 1 AND 2, Q2W - INTRAVENOUS NOS
     Route: 042
     Dates: start: 20040622, end: 20040623
  4. BEVACIZUMAB - SOLUTION - 5 MG/KG [Suspect]
     Dosage: 5 MG/KG Q2W - INTRAVENUS NOS
     Route: 042
     Dates: start: 20040623, end: 20040623
  5. GRANISETRON [Concomitant]
  6. DEXAMETHASONE [Concomitant]
  7. DIPHENHYDROAMINE HYDROCHLORIDE [Concomitant]
  8. METHADONE HYDROCHLORIDE [Concomitant]
  9. MULTI-VITAMIN [Concomitant]

REACTIONS (31)
  - ANION GAP INCREASED [None]
  - ARRHYTHMIA [None]
  - ASPARTATE AMINOTRANSFERASE INCREASED [None]
  - BLOOD ALBUMIN DECREASED [None]
  - BLOOD ALKALINE PHOSPHATASE INCREASED [None]
  - BLOOD GLUCOSE INCREASED [None]
  - BLOOD POTASSIUM DECREASED [None]
  - BLOOD PRESSURE INCREASED [None]
  - BODY TEMPERATURE INCREASED [None]
  - CALCINOSIS [None]
  - CARDIO-RESPIRATORY ARREST [None]
  - COMA [None]
  - DRUG INEFFECTIVE [None]
  - EXTRASYSTOLES [None]
  - FALL [None]
  - HYPOTENSION [None]
  - INTERCOSTAL RETRACTION [None]
  - MENINGIOMA [None]
  - OXYGEN SATURATION DECREASED [None]
  - POSTURING [None]
  - PULSE ABSENT [None]
  - RESPIRATORY DISTRESS [None]
  - RESPIRATORY RATE DECREASED [None]
  - RESPIRATORY RATE INCREASED [None]
  - SNORING [None]
  - STARING [None]
  - TACHYCARDIA [None]
  - TORSADE DE POINTES [None]
  - URINARY INCONTINENCE [None]
  - VENTRICULAR TACHYCARDIA [None]
  - VOMITING [None]
